FAERS Safety Report 6252357-7 (Version None)
Quarter: 2009Q2

REPORT INFORMATION
  Report Type: 
  Country: None (occurrence: None)
  Receive Date: 20090629
  Receipt Date: 20090629
  Transmission Date: 20091009
  Serious: No
  Sender: FDA-Public Use
  Company Number: None

PATIENT
  Sex: Female

DRUGS (1)
  1. ACETAZOLAMIDE ER 500MG BARR [Suspect]
     Dosage: 500MG TID ORALLY
     Route: 048
     Dates: start: 20090211, end: 20090424

REACTIONS (2)
  - ABDOMINAL PAIN [None]
  - PRODUCT SUBSTITUTION ISSUE [None]
